FAERS Safety Report 25871311 (Version 1)
Quarter: 2025Q4

REPORT INFORMATION
  Report Type: Spontaneous
  Country: EU (occurrence: EU)
  Receive Date: 20251001
  Receipt Date: 20251001
  Transmission Date: 20260118
  Serious: Yes (Other)
  Sender: MYLAN
  Company Number: None

PATIENT
  Age: 22 Year
  Sex: Female

DRUGS (24)
  1. ZOLOFT [Suspect]
     Active Substance: SERTRALINE HYDROCHLORIDE
     Indication: Product used for unknown indication
     Dosage: 1400 MILLIGRAM, QD (1-2 BLISTERS X 50 MG ZOLOFTA)
     Dates: start: 20250704, end: 20250704
  2. ZOLOFT [Suspect]
     Active Substance: SERTRALINE HYDROCHLORIDE
     Dosage: 1400 MILLIGRAM, QD (1-2 BLISTERS X 50 MG ZOLOFTA)
     Route: 048
     Dates: start: 20250704, end: 20250704
  3. ZOLOFT [Suspect]
     Active Substance: SERTRALINE HYDROCHLORIDE
     Dosage: 1400 MILLIGRAM, QD (1-2 BLISTERS X 50 MG ZOLOFTA)
     Route: 048
     Dates: start: 20250704, end: 20250704
  4. ZOLOFT [Suspect]
     Active Substance: SERTRALINE HYDROCHLORIDE
     Dosage: 1400 MILLIGRAM, QD (1-2 BLISTERS X 50 MG ZOLOFTA)
     Dates: start: 20250704, end: 20250704
  5. INSULIN NOS [Suspect]
     Active Substance: INSULIN NOS
     Indication: Product used for unknown indication
     Dosage: UNK (20 UNITS OF SLOW-ACTING INSULIN, 50 UNITS OF FAST-ACTING INSULIN)
     Dates: start: 20250704, end: 20250704
  6. INSULIN NOS [Suspect]
     Active Substance: INSULIN NOS
     Dosage: UNK (20 UNITS OF SLOW-ACTING INSULIN, 50 UNITS OF FAST-ACTING INSULIN)
     Route: 048
     Dates: start: 20250704, end: 20250704
  7. INSULIN NOS [Suspect]
     Active Substance: INSULIN NOS
     Dosage: UNK (20 UNITS OF SLOW-ACTING INSULIN, 50 UNITS OF FAST-ACTING INSULIN)
     Route: 048
     Dates: start: 20250704, end: 20250704
  8. INSULIN NOS [Suspect]
     Active Substance: INSULIN NOS
     Dosage: UNK (20 UNITS OF SLOW-ACTING INSULIN, 50 UNITS OF FAST-ACTING INSULIN)
     Dates: start: 20250704, end: 20250704
  9. NAPROXEN SODIUM [Suspect]
     Active Substance: NAPROXEN SODIUM
     Indication: Product used for unknown indication
     Dosage: 8250 MILLIGRAM, QD
     Dates: start: 20250704, end: 20250704
  10. NAPROXEN SODIUM [Suspect]
     Active Substance: NAPROXEN SODIUM
     Dosage: 8250 MILLIGRAM, QD
     Route: 048
     Dates: start: 20250704, end: 20250704
  11. NAPROXEN SODIUM [Suspect]
     Active Substance: NAPROXEN SODIUM
     Dosage: 8250 MILLIGRAM, QD
     Route: 048
     Dates: start: 20250704, end: 20250704
  12. NAPROXEN SODIUM [Suspect]
     Active Substance: NAPROXEN SODIUM
     Dosage: 8250 MILLIGRAM, QD
     Dates: start: 20250704, end: 20250704
  13. ACETAMINOPHEN [Suspect]
     Active Substance: ACETAMINOPHEN
     Indication: Product used for unknown indication
     Dosage: 5000 MILLIGRAM, QD
     Dates: start: 20250704, end: 20250704
  14. ACETAMINOPHEN [Suspect]
     Active Substance: ACETAMINOPHEN
     Dosage: 5000 MILLIGRAM, QD
     Route: 048
     Dates: start: 20250704, end: 20250704
  15. ACETAMINOPHEN [Suspect]
     Active Substance: ACETAMINOPHEN
     Dosage: 5000 MILLIGRAM, QD
     Route: 048
     Dates: start: 20250704, end: 20250704
  16. ACETAMINOPHEN [Suspect]
     Active Substance: ACETAMINOPHEN
     Dosage: 5000 MILLIGRAM, QD
     Dates: start: 20250704, end: 20250704
  17. NORMABEL [Suspect]
     Active Substance: DIAZEPAM
     Indication: Product used for unknown indication
     Dosage: 18 MILLIGRAM, QD
     Dates: start: 20250704, end: 20250704
  18. NORMABEL [Suspect]
     Active Substance: DIAZEPAM
     Dosage: 18 MILLIGRAM, QD
     Route: 048
     Dates: start: 20250704, end: 20250704
  19. NORMABEL [Suspect]
     Active Substance: DIAZEPAM
     Dosage: 18 MILLIGRAM, QD
     Route: 048
     Dates: start: 20250704, end: 20250704
  20. NORMABEL [Suspect]
     Active Substance: DIAZEPAM
     Dosage: 18 MILLIGRAM, QD
     Dates: start: 20250704, end: 20250704
  21. RAMIPRIL [Suspect]
     Active Substance: RAMIPRIL
     Indication: Product used for unknown indication
     Dosage: 7 DOSAGE FORM, QD (1 DF =1 TABLET)
     Dates: start: 20250704, end: 20250704
  22. RAMIPRIL [Suspect]
     Active Substance: RAMIPRIL
     Dosage: 7 DOSAGE FORM, QD (1 DF =1 TABLET)
     Route: 048
     Dates: start: 20250704, end: 20250704
  23. RAMIPRIL [Suspect]
     Active Substance: RAMIPRIL
     Dosage: 7 DOSAGE FORM, QD (1 DF =1 TABLET)
     Route: 048
     Dates: start: 20250704, end: 20250704
  24. RAMIPRIL [Suspect]
     Active Substance: RAMIPRIL
     Dosage: 7 DOSAGE FORM, QD (1 DF =1 TABLET)
     Dates: start: 20250704, end: 20250704

REACTIONS (5)
  - Suicide attempt [Unknown]
  - Intentional overdose [Unknown]
  - Vomiting [Unknown]
  - Somnolence [Unknown]
  - Incorrect route of product administration [Unknown]

NARRATIVE: CASE EVENT DATE: 20250704
